FAERS Safety Report 7403871-X (Version None)
Quarter: 2011Q2

REPORT INFORMATION
  Report Type: 
  Country: None (occurrence: None)
  Receive Date: 20110408
  Receipt Date: 20110405
  Transmission Date: 20111010
  Serious: Yes (Other)
  Sender: FDA-Public Use
  Company Number: US-ABBOTT-11P-163-0715829-00

PATIENT
  Sex: Female
  Weight: 91.254 kg

DRUGS (8)
  1. ASACOL [Concomitant]
     Indication: PRODUCT USED FOR UNKNOWN INDICATION
  2. AMOXICILLIN [Suspect]
     Indication: HELICOBACTER INFECTION
     Dates: start: 20110405
  3. PREDNISONE [Suspect]
     Indication: ARTHRITIS
  4. BIAXIN [Suspect]
     Indication: HELICOBACTER INFECTION
     Dates: end: 20110405
  5. VITAMIN D [Concomitant]
     Indication: PRODUCT USED FOR UNKNOWN INDICATION
  6. OMEPRAZOLE [Suspect]
     Indication: GASTRITIS
  7. MULTI-VITAMIN [Concomitant]
     Indication: PRODUCT USED FOR UNKNOWN INDICATION
  8. HUMIRA [Suspect]
     Indication: CROHN'S DISEASE
     Route: 058
     Dates: start: 20100801

REACTIONS (19)
  - GASTRITIS [None]
  - ERUCTATION [None]
  - HYPOTONIA [None]
  - INTESTINAL STENOSIS [None]
  - IMPAIRED HEALING [None]
  - CYSTITIS NONINFECTIVE [None]
  - NAUSEA [None]
  - LYMPH NODE PAIN [None]
  - ABSCESS [None]
  - POLLAKIURIA [None]
  - FISTULA [None]
  - CROHN'S DISEASE [None]
  - ABDOMINAL PAIN UPPER [None]
  - ARTHRALGIA [None]
  - ARTHRITIS [None]
  - HELICOBACTER INFECTION [None]
  - DRUG INEFFECTIVE [None]
  - INTESTINAL OPERATION [None]
  - DIARRHOEA [None]
